FAERS Safety Report 4570259-9 (Version None)
Quarter: 2005Q1

REPORT INFORMATION
  Report Type: 
  Country: None (occurrence: None)
  Receive Date: 20050127
  Receipt Date: 20050127
  Transmission Date: 20050727
  Serious: Yes (Hospitalization)
  Sender: FDA-Public Use
  Company Number: None

PATIENT
  Age: 35 Year
  Sex: Male
  Weight: 72.5755 kg

DRUGS (4)
  1. REMICADE [Suspect]
     Indication: CROHN'S DISEASE
     Dosage: STANDARD/KG  0 WEEK INTRAVENOUS ; STANDARD/KG  2 WEEK  INTRAVENOU
     Route: 042
     Dates: start: 20040913, end: 20040913
  2. REMICADE [Suspect]
     Indication: CROHN'S DISEASE
     Dosage: STANDARD/KG  0 WEEK INTRAVENOUS ; STANDARD/KG  2 WEEK  INTRAVENOU
     Route: 042
     Dates: start: 20041001, end: 20041001
  3. PENTASA [Concomitant]
  4. PURINETHOL [Concomitant]

REACTIONS (4)
  - HISTOPLASMOSIS [None]
  - NO THERAPEUTIC RESPONSE [None]
  - PNEUMONIA [None]
  - PYREXIA [None]
